FAERS Safety Report 8555509-6 (Version None)
Quarter: 2012Q3

REPORT INFORMATION
  Report Type: 
  Country: None (occurrence: None)
  Receive Date: 20120731
  Receipt Date: 20110819
  Transmission Date: 20120928
  Serious: No
  Sender: FDA-Public Use
  Company Number: US-ASTRAZENECA-2011SE21238

PATIENT
  Age: 44 Year
  Sex: Female
  Weight: 70.3 kg

DRUGS (9)
  1. SEROQUEL [Suspect]
     Indication: BIPOLAR DISORDER
     Route: 048
     Dates: start: 20070101
  2. SOMA [Concomitant]
  3. LYRICA [Concomitant]
  4. OXYCODONE HCL [Concomitant]
  5. ZOLOFT [Concomitant]
  6. CLONAZEPAM [Concomitant]
  7. SEROQUEL [Suspect]
     Route: 048
  8. PRILOSEC [Concomitant]
  9. CARAFATE [Concomitant]

REACTIONS (6)
  - CRYING [None]
  - INCORRECT DOSE ADMINISTERED [None]
  - WEIGHT INCREASED [None]
  - DEPRESSION [None]
  - GASTROOESOPHAGEAL REFLUX DISEASE [None]
  - FEELING ABNORMAL [None]
